FAERS Safety Report 9285387 (Version 1)
Quarter: 2013Q2

REPORT INFORMATION
  Report Type: Spontaneous
  Country: US (occurrence: US)
  Receive Date: 20130513
  Receipt Date: 20130513
  Transmission Date: 20140414
  Serious: Yes (Other)
  Sender: FDA-Public Use
  Company Number: US-JNJFOC-20130502317

PATIENT
  Age: 48 Year
  Sex: Male

DRUGS (1)
  1. NICOTINE POLACRILEX GUM [Suspect]
     Indication: SMOKING CESSATION THERAPY
     Dosage: 1 YEARS
     Route: 065

REACTIONS (2)
  - Dependence [Not Recovered/Not Resolved]
  - Intentional drug misuse [Unknown]
